FAERS Safety Report 25810778 (Version 1)
Quarter: 2025Q3

REPORT INFORMATION
  Report Type: Spontaneous
  Country: CA (occurrence: CA)
  Receive Date: 20250917
  Receipt Date: 20250917
  Transmission Date: 20251020
  Serious: Yes (Other)
  Sender: AUROBINDO
  Company Number: CA-AUROBINDO-AUR-APL-2025-046376

PATIENT
  Age: 35 Year
  Sex: Female

DRUGS (2)
  1. VALGANCICLOVIR [Suspect]
     Active Substance: VALGANCICLOVIR
     Indication: Prophylaxis
     Route: 065
  2. LIVTENCITY [Suspect]
     Active Substance: MARIBAVIR
     Indication: Product used for unknown indication
     Route: 065

REACTIONS (3)
  - Taste disorder [Recovering/Resolving]
  - Neutropenia [Recovering/Resolving]
  - Cytomegalovirus test positive [Recovering/Resolving]
